FAERS Safety Report 20923878 (Version 1)
Quarter: 2022Q2

REPORT INFORMATION
  Report Type: Spontaneous
  Country: US (occurrence: None)
  Receive Date: 20220606
  Receipt Date: 20220606
  Transmission Date: 20220720
  Serious: Yes (Hospitalization, Other)
  Sender: FDA-Public Use
  Company Number: None

PATIENT
  Age: 54 Year
  Sex: Male
  Weight: 139 kg

DRUGS (7)
  1. JARDIANCE [Suspect]
     Active Substance: EMPAGLIFLOZIN
     Indication: Type 2 diabetes mellitus
     Dosage: FREQUENCY : DAILY;?
     Route: 048
  2. Lisinopril 40mg- QD [Concomitant]
  3. Oxycodone 30mg- q6h prn for pain [Concomitant]
  4. Furosemide 40mg- BID [Concomitant]
  5. Lantus 50 U qAM and 60 U qhs [Concomitant]
  6. Gabapentin 600mg TID [Concomitant]
  7. Atorvastatin 40mg QD [Concomitant]

REACTIONS (6)
  - Scrotal infection [None]
  - Scrotal swelling [None]
  - Fournier^s gangrene [None]
  - Perineal abscess [None]
  - Perirectal abscess [None]
  - Bacterial infection [None]

NARRATIVE: CASE EVENT DATE: 20220605
